FAERS Safety Report 9882333 (Version 1)
Quarter: 2014Q1

REPORT INFORMATION
  Report Type: Spontaneous
  Country: US (occurrence: US)
  Receive Date: 20140207
  Receipt Date: 20140207
  Transmission Date: 20141002
  Serious: Yes (Hospitalization)
  Sender: FDA-Public Use
  Company Number: US-GLAXOSMITHKLINE-A1059459A

PATIENT
  Age: 62 Year
  Sex: Female

DRUGS (14)
  1. LAMICTAL [Suspect]
     Indication: BIPOLAR DISORDER
     Dosage: 100MG TWICE PER DAY
     Route: 048
     Dates: start: 2009
  2. EFFEXOR [Concomitant]
  3. SEROQUEL [Concomitant]
  4. KLONOPIN [Concomitant]
  5. ATIVAN [Concomitant]
  6. CATAPRES [Concomitant]
  7. PRINIVIL [Concomitant]
  8. SYNTHROID [Concomitant]
  9. NEXIUM [Concomitant]
  10. LASIX [Concomitant]
  11. FOLIC ACID [Concomitant]
  12. APIDRA [Concomitant]
  13. LANTUS [Concomitant]
  14. BABY ASPIRIN [Concomitant]

REACTIONS (6)
  - Suicidal ideation [Unknown]
  - Loss of consciousness [Unknown]
  - Diabetic complication [Unknown]
  - Skin ulcer [Unknown]
  - Depression [Unknown]
  - Stress [Unknown]
